FAERS Safety Report 6546877-5 (Version None)
Quarter: 2010Q1

REPORT INFORMATION
  Report Type: 
  Country: None (occurrence: None)
  Receive Date: 20100122
  Receipt Date: 20100119
  Transmission Date: 20100710
  Serious: Yes (Death)
  Sender: FDA-Public Use
  Company Number: US-CELGENEUS-163-20785-09122208

PATIENT
  Sex: Female

DRUGS (3)
  1. THALOMID [Suspect]
     Indication: MULTIPLE MYELOMA
     Route: 048
     Dates: start: 20071101
  2. THALOMID [Suspect]
     Route: 048
     Dates: start: 20071018, end: 20071001
  3. THALOMID [Suspect]
     Route: 048
     Dates: start: 20071001, end: 20071101

REACTIONS (1)
  - MYELODYSPLASTIC SYNDROME [None]
